FAERS Safety Report 8789455 (Version 1)
Quarter: 2012Q4

REPORT INFORMATION
  Report Type: Spontaneous
  Country: NL (occurrence: None)
  Receive Date: 20120906
  Receipt Date: 20120906
  Transmission Date: 20130627
  Serious: Yes (Death, Hospitalization)
  Sender: FDA-Public Use
  Company Number: DSA_59159_2012

PATIENT
  Age: 38 Year
  Sex: Female
  Weight: 45 kg

DRUGS (8)
  1. METRONIDAZOLE (METRONIDAZOLE) [Suspect]
     Indication: WOUND INFECTION
  2. METRONIDAZOLE (METRONIDAZOLE) [Suspect]
     Indication: OSTEOMYELITIS
  3. METRONIDAZOLE (METRONIDAZOLE) [Suspect]
     Indication: WOUND INFECTION
  4. METRONIDAZOLE (METRONIDAZOLE) [Suspect]
     Indication: OSTEOMYELITIS
  5. TEICOPLANIN [Concomitant]
  6. TRIMETHOPRIM SULFAMETHOXAZOLE [Concomitant]
  7. BACLOFEN [Concomitant]
  8. OMEPRAZOLE [Concomitant]

REACTIONS (12)
  - Somnolence [None]
  - Dysarthria [None]
  - Encephalopathy [None]
  - Coma [None]
  - Pupils unequal [None]
  - Blood potassium decreased [None]
  - Blood urea decreased [None]
  - Blood creatinine decreased [None]
  - Vitamin B1 deficiency [None]
  - Cerebral ventricle dilatation [None]
  - Convulsion [None]
  - Hypoventilation [None]
